FAERS Safety Report 12667242 (Version 1)
Quarter: 2016Q3

REPORT INFORMATION
  Report Type: Spontaneous
  Country: US (occurrence: None)
  Receive Date: 20160818
  Receipt Date: 20160818
  Transmission Date: 20161109
  Serious: Yes (Death, Life-Threatening, Other)
  Sender: FDA-Public Use
  Company Number: None

PATIENT
  Age: 68 Year
  Sex: Male

DRUGS (12)
  1. DOCUSATE SODIUM. [Concomitant]
     Active Substance: DOCUSATE SODIUM
  2. CITALOPRAM HYDROBROMIDE (CELEXA) [Concomitant]
  3. POTASSIUM CHLORIDE. [Concomitant]
     Active Substance: POTASSIUM CHLORIDE
  4. HYDROCODONE ACETAMINOPHEN (NORCO) [Concomitant]
  5. LISINOPRIL (PRINIVIL) [Concomitant]
  6. PEPCID [Concomitant]
     Active Substance: FAMOTIDINE
  7. ASPIRIN, ENTERIC COATED [Concomitant]
  8. METOPROLOL SUCCINATE TB [Concomitant]
  9. ESBRIET [Suspect]
     Active Substance: PIRFENIDONE
     Indication: IDIOPATHIC PULMONARY FIBROSIS
     Dosage: 1 CAPS 3X A DAY 1-7?2 CAPS 3X A DAY 8-14?3 CAPS 3X A DAY 15 ONWARD?3 TIMES A DAY BY MOUTH WITH FOOD.
     Route: 048
     Dates: start: 20160624, end: 20160701
  10. LASIX [Concomitant]
     Active Substance: FUROSEMIDE
  11. LIPITOR [Concomitant]
     Active Substance: ATORVASTATIN CALCIUM
  12. COUMADIN [Concomitant]
     Active Substance: WARFARIN SODIUM

REACTIONS (10)
  - Nausea [None]
  - Epistaxis [None]
  - Abdominal discomfort [None]
  - Sleep apnoea syndrome [None]
  - Respiratory arrest [None]
  - Pulmonary congestion [None]
  - Fatigue [None]
  - Snoring [None]
  - Pleural effusion [None]
  - Cardiac failure congestive [None]

NARRATIVE: CASE EVENT DATE: 20160624
